FAERS Safety Report 6802067-X (Version None)
Quarter: 2010Q2

REPORT INFORMATION
  Report Type: 
  Country: None (occurrence: None)
  Receive Date: 20100629
  Receipt Date: 20061003
  Transmission Date: 20101027
  Serious: No
  Sender: FDA-Public Use
  Company Number: US-PFIZER INC-2007020560

PATIENT
  Sex: Male

DRUGS (2)
  1. ALDACTONE [Suspect]
     Dosage: DAILY
  2. DRUG, UNSPECIFIED [Concomitant]

REACTIONS (2)
  - BREAST TENDERNESS [None]
  - DIZZINESS [None]
